FAERS Safety Report 4754982-9 (Version None)
Quarter: 2005Q3

REPORT INFORMATION
  Report Type: 
  Country: None (occurrence: None)
  Receive Date: 20050829
  Receipt Date: 20050816
  Transmission Date: 20060218
  Serious: Yes (Other)
  Sender: FDA-Public Use
  Company Number: NSADSS2001002833

PATIENT
  Sex: Male

DRUGS (1)
  1. NIZORAL A-D [Suspect]
     Indication: DRUG USE FOR UNKNOWN INDICATION
     Route: 003
     Dates: start: 20000107

REACTIONS (6)
  - CONJUNCTIVITIS [None]
  - EYE BURNS [None]
  - EYE IRRITATION [None]
  - HERPES ZOSTER [None]
  - THERMAL BURN [None]
  - ULCERATIVE KERATITIS [None]
